FAERS Safety Report 4894810-4 (Version None)
Quarter: 2006Q1

REPORT INFORMATION
  Report Type: 
  Country: None (occurrence: None)
  Receive Date: 20060130
  Receipt Date: 20060120
  Transmission Date: 20060701
  Serious: Yes (Hospitalization)
  Sender: FDA-Public Use
  Company Number: US-JNJFOC-20060105399

PATIENT
  Sex: Female
  Weight: 2.55 kg

DRUGS (13)
  1. REMICADE [Suspect]
     Indication: CROHN'S DISEASE
  2. 6-MP [Concomitant]
  3. PREDNISONE [Concomitant]
     Indication: PROPHYLAXIS
  4. TYLENOL-500 [Concomitant]
     Indication: PROPHYLAXIS
  5. BENADRYL [Concomitant]
     Indication: PROPHYLAXIS
  6. ACIPHEX [Concomitant]
  7. BIAXIN [Concomitant]
  8. MUCINEX [Concomitant]
  9. AMOXICILLIN [Concomitant]
  10. FLONA-Q [Concomitant]
  11. BETAMETHACIN [Concomitant]
  12. BETAMETHACIN [Concomitant]
     Indication: ABDOMINAL PAIN
  13. IRON [Concomitant]
     Indication: NUTRITIONAL SUPPORT

REACTIONS (3)
  - DRUG EXPOSURE DURING PREGNANCY [None]
  - INFANTILE APNOEIC ATTACK [None]
  - PREMATURE BABY [None]
